FAERS Safety Report 11819316 (Version 1)
Quarter: 2015Q4

REPORT INFORMATION
  Report Type: Spontaneous
  Country: US (occurrence: None)
  Receive Date: 20151209
  Receipt Date: 20151209
  Transmission Date: 20160305
  Serious: Yes (Hospitalization)
  Sender: FDA-Public Use
  Company Number: None

PATIENT
  Age: 87 Year
  Sex: Male
  Weight: 54.43 kg

DRUGS (9)
  1. VITAMIN C [Concomitant]
     Active Substance: ASCORBIC ACID
  2. PHENYTOIN NA 100MG SA CAP [Suspect]
     Active Substance: PHENYTOIN SODIUM
     Indication: SEIZURE
     Dosage: (GRAY) PURPLE + WHITE CAPSULE MYLAN 1560?HAD SEIZURE 10/18/15
     Route: 048
     Dates: start: 20150828, end: 20151022
  3. MG [Concomitant]
     Active Substance: MAGNESIUM
  4. CALCIUM [Concomitant]
     Active Substance: CALCIUM
  5. PREDNISONE. [Concomitant]
     Active Substance: PREDNISONE
  6. NEBULIZER [Concomitant]
     Active Substance: DEVICE
  7. VITAMIN B1 [Concomitant]
     Active Substance: THIAMINE HYDROCHLORIDE
  8. VITAMIN D [Concomitant]
     Active Substance: CHOLECALCIFEROL
  9. VITAMINS [Concomitant]
     Active Substance: VITAMINS

REACTIONS (6)
  - Constipation [None]
  - Gastrointestinal obstruction [None]
  - Product quality issue [None]
  - Hand fracture [None]
  - Product physical issue [None]
  - Drug level decreased [None]

NARRATIVE: CASE EVENT DATE: 20151018
